FAERS Safety Report 22226513 (Version 3)
Quarter: 2023Q2

REPORT INFORMATION
  Report Type: Report from Study
  Country: US (occurrence: US)
  Receive Date: 20230419
  Receipt Date: 20230427
  Transmission Date: 20230721
  Serious: Yes (Other)
  Sender: FDA-Public Use
  Company Number: US-UCBSA-2023019158

PATIENT
  Age: 11 Year
  Sex: Female
  Weight: 28.58 kg

DRUGS (9)
  1. FINTEPLA [Suspect]
     Active Substance: FENFLURAMINE
     Indication: Product used for unknown indication
     Dosage: 0.37 MG/KG/DAY, TOTAL 10.56 MG/DAY
     Dates: start: 202208
  2. FINTEPLA [Suspect]
     Active Substance: FENFLURAMINE
     Dosage: 2 MILLILITER, 2X/DAY (BID) FOR 1 WEEK
  3. FINTEPLA [Suspect]
     Active Substance: FENFLURAMINE
     Dosage: 1.6 MILLILITER, 2X/DAY (BID) FOR 1 WEEK
  4. FINTEPLA [Suspect]
     Active Substance: FENFLURAMINE
     Dosage: 1 MILLILITER, 2X/DAY (BID) FOR 1 WEEK
  5. FINTEPLA [Suspect]
     Active Substance: FENFLURAMINE
     Dosage: 0.37 MG/KG/DAY, TOTAL 10.5 MG/DAY
     Dates: start: 20221202
  6. FINTEPLA [Suspect]
     Active Substance: FENFLURAMINE
     Dosage: 2 ML BID FOR 1 WEEK
  7. FINTEPLA [Suspect]
     Active Substance: FENFLURAMINE
     Dosage: 1.6ML BID FOR 1 WEEK
  8. FINTEPLA [Suspect]
     Active Substance: FENFLURAMINE
     Dosage: 1 ML BID FOR 1 WEEK
  9. FINTEPLA [Suspect]
     Active Substance: FENFLURAMINE
     Dosage: 0.5ML

REACTIONS (8)
  - Aortic valve incompetence [Unknown]
  - Tricuspid valve incompetence [Not Recovered/Not Resolved]
  - Pulmonary valve incompetence [Not Recovered/Not Resolved]
  - Aortic valve thickening [Not Recovered/Not Resolved]
  - Echocardiogram abnormal [Not Recovered/Not Resolved]
  - Aortic dilatation [Unknown]
  - Cardiac valve disease [Unknown]
  - Drug ineffective [Unknown]

NARRATIVE: CASE EVENT DATE: 20230324
